FAERS Safety Report 4815140-2 (Version None)
Quarter: 2005Q4

REPORT INFORMATION
  Report Type: 
  Country: None (occurrence: None)
  Receive Date: 20051027
  Receipt Date: 20051013
  Transmission Date: 20060501
  Serious: Yes (Other)
  Sender: FDA-Public Use
  Company Number: 05US000700

PATIENT
  Age: 16 Year
  Sex: Male

DRUGS (1)
  1. LITHIUM CARBONATE [Suspect]
     Dosage: 300 MG, BID, ORAL
     Route: 048

REACTIONS (1)
  - CONVULSION [None]
